FAERS Safety Report 9803817 (Version 1)
Quarter: 2014Q1

REPORT INFORMATION
  Report Type: Spontaneous
  Country: US (occurrence: US)
  Receive Date: 20140108
  Receipt Date: 20140108
  Transmission Date: 20141002
  Serious: No
  Sender: FDA-Public Use
  Company Number: US-GLAXOSMITHKLINE-A1043509A

PATIENT
  Age: 52 Year
  Sex: Male

DRUGS (3)
  1. LOVAZA [Suspect]
     Indication: BLOOD TRIGLYCERIDES
     Dosage: 1G UNKNOWN
     Route: 065
     Dates: start: 20100101
  2. SEROQUEL [Concomitant]
  3. LITHIUM [Concomitant]

REACTIONS (1)
  - Tremor [Unknown]
